FAERS Safety Report 10156354 (Version 2)
Quarter: 2014Q2

REPORT INFORMATION
  Report Type: Spontaneous
  Country: US (occurrence: US)
  Receive Date: 20140507
  Receipt Date: 20140507
  Transmission Date: 20141212
  Serious: No
  Sender: FDA-Public Use
  Company Number: US-009507513-1005USA00168

PATIENT
  Age: 75 Year
  Sex: Female

DRUGS (4)
  1. ZETIA [Suspect]
     Indication: BLOOD CHOLESTEROL
     Dosage: 10 MG, QD
     Route: 048
     Dates: start: 20100419, end: 20100501
  2. BISOPROLOL FUMARATE [Concomitant]
  3. VITAMIN D (UNSPECIFIED) [Concomitant]
     Dosage: UNK
  4. CALTRATE (CALCIUM CARBONATE) [Concomitant]

REACTIONS (3)
  - Abdominal discomfort [Not Recovered/Not Resolved]
  - Pain in extremity [Unknown]
  - Arthralgia [Unknown]
